FAERS Safety Report 9835834 (Version 2)
Quarter: 2014Q3

REPORT INFORMATION
  Report Type: Spontaneous
  Country: US (occurrence: US)
  Receive Date: 20140122
  Receipt Date: 20140725
  Transmission Date: 20150326
  Serious: Yes (Hospitalization, Other)
  Sender: FDA-Public Use
  Company Number: US-009507513-1401USA010051

PATIENT
  Sex: Female

DRUGS (1)
  1. NUVARING [Suspect]
     Active Substance: ETHINYL ESTRADIOL\ETONOGESTREL
     Indication: CONTRACEPTION
     Route: 067

REACTIONS (13)
  - Weight increased [Unknown]
  - Back pain [Not Recovered/Not Resolved]
  - Joint effusion [Unknown]
  - Deep vein thrombosis [Unknown]
  - Abdominal pain [Unknown]
  - Hypertension [Unknown]
  - Ovarian cyst [Unknown]
  - Endometriosis [Unknown]
  - Pulmonary embolism [Unknown]
  - Pelvic pain [Not Recovered/Not Resolved]
  - Dyspareunia [Not Recovered/Not Resolved]
  - Gastrooesophageal reflux disease [Not Recovered/Not Resolved]
  - Vaginal haemorrhage [Unknown]

NARRATIVE: CASE EVENT DATE: 2001
